FAERS Safety Report 9790579 (Version 1)
Quarter: 2013Q4

REPORT INFORMATION
  Report Type: Spontaneous
  Country: FR (occurrence: FR)
  Receive Date: 20131231
  Receipt Date: 20131231
  Transmission Date: 20140711
  Serious: Yes (Life-Threatening, Hospitalization)
  Sender: FDA-Public Use
  Company Number: FR-JNJFOC-20131217135

PATIENT
  Age: 46 Year
  Sex: Male

DRUGS (4)
  1. REMICADE [Suspect]
     Indication: CROHN^S DISEASE
     Dosage: 19TH COURSE
     Route: 042
     Dates: start: 20130402, end: 20130402
  2. REMICADE [Suspect]
     Indication: CROHN^S DISEASE
     Route: 042
     Dates: start: 20100902
  3. PENTASA [Suspect]
     Indication: PRODUCT USED FOR UNKNOWN INDICATION
     Route: 065
     Dates: start: 1995
  4. SOLU MEDROL [Suspect]
     Indication: PRODUCT USED FOR UNKNOWN INDICATION
     Route: 042
     Dates: start: 20100902, end: 20130402

REACTIONS (9)
  - Disseminated tuberculosis [Recovering/Resolving]
  - Granulomatous liver disease [Recovered/Resolved]
  - Splenic infarction [Unknown]
  - Peripheral ischaemia [Unknown]
  - Renal infarct [Unknown]
  - Mesenteric artery thrombosis [Unknown]
  - Pulmonary embolism [Unknown]
  - Immune reconstitution inflammatory syndrome [Unknown]
  - Arthralgia [Unknown]
